FAERS Safety Report 7979257-6 (Version None)
Quarter: 2011Q4

REPORT INFORMATION
  Report Type: 
  Country: None (occurrence: None)
  Receive Date: 20111214
  Receipt Date: 20111214
  Transmission Date: 20120403
  Serious: Yes (Other)
  Sender: FDA-Public Use
  Company Number: None

PATIENT
  Age: 46 Year
  Sex: Male
  Weight: 85.275 kg

DRUGS (1)
  1. CIALIS [Suspect]
     Dosage: 10 MG
     Dates: start: 20070801, end: 20111120

REACTIONS (4)
  - SEXUAL ACTIVITY INCREASED [None]
  - TINNITUS [None]
  - HEADACHE [None]
  - FLUSHING [None]
